FAERS Safety Report 4315495-1 (Version None)
Quarter: 2004Q1

REPORT INFORMATION
  Report Type: 
  Country: None (occurrence: None)
  Receive Date: 20040311
  Receipt Date: 20040302
  Transmission Date: 20041129
  Serious: Yes (Hospitalization)
  Sender: FDA-Public Use
  Company Number: WAES 0403USA00420

PATIENT
  Age: 81 Year
  Sex: Female

DRUGS (8)
  1. MUCODYNE [Concomitant]
     Route: 048
     Dates: start: 19990101
  2. PEPCID RPD [Suspect]
     Route: 048
     Dates: start: 19990101
  3. CLARITIN [Concomitant]
     Route: 048
     Dates: start: 19990101
  4. CYANOCOBALAMIN [Concomitant]
     Route: 048
     Dates: start: 19990101
  5. ADALAT [Concomitant]
     Route: 048
     Dates: start: 19990101
  6. POLLAKISU [Concomitant]
     Route: 048
     Dates: start: 19990101
  7. PREDNISOLONE [Concomitant]
     Route: 048
     Dates: start: 19990101
  8. THEO-DUR [Suspect]
     Route: 048
     Dates: start: 19990101

REACTIONS (4)
  - ANOREXIA [None]
  - FATIGUE [None]
  - LOSS OF CONSCIOUSNESS [None]
  - STEVENS-JOHNSON SYNDROME [None]
